FAERS Safety Report 5062961-X (Version None)
Quarter: 2006Q3

REPORT INFORMATION
  Report Type: 
  Country: None (occurrence: None)
  Receive Date: 20060727
  Receipt Date: 20060718
  Transmission Date: 20061208
  Serious: Yes (Hospitalization)
  Sender: FDA-Public Use
  Company Number: 2006CG01247

PATIENT
  Age: 82 Year
  Sex: Female

DRUGS (6)
  1. NEXIUM [Suspect]
     Route: 048
     Dates: start: 20060618, end: 20060705
  2. DUPHALAC [Suspect]
     Route: 048
     Dates: start: 20060618, end: 20060705
  3. LASILIX [Suspect]
     Route: 048
     Dates: start: 20060617, end: 20060705
  4. LOXEN LP [Suspect]
     Route: 048
     Dates: start: 20060626, end: 20060705
  5. AUGMENTIN '125' [Concomitant]
     Dates: start: 20060615, end: 20060627
  6. FRAGMIN [Concomitant]
     Route: 058
     Dates: start: 20060618, end: 20060705

REACTIONS (3)
  - RASH MORBILLIFORM [None]
  - SKIN BURNING SENSATION [None]
  - SKIN EXFOLIATION [None]
